FAERS Safety Report 5508772-X (Version None)
Quarter: 2007Q4

REPORT INFORMATION
  Report Type: 
  Country: None (occurrence: None)
  Receive Date: 20071105
  Receipt Date: 20071023
  Transmission Date: 20080405
  Serious: Yes (Disabling, Other)
  Sender: FDA-Public Use
  Company Number: A-US2007-15949

PATIENT
  Age: 76 Year
  Sex: Female

DRUGS (18)
  1. TRACLEER [Suspect]
     Indication: PULMONARY HYPERTENSION
     Dosage: 62.5 MG, BID, ORAL
     Route: 048
     Dates: start: 20070215, end: 20070525
  2. BETAGAN [Concomitant]
  3. NORCO [Concomitant]
  4. FOLIC ACID [Concomitant]
  5. TOPROL-XL [Concomitant]
  6. CALTRATE PLUS (COLECALCIFEROL, MANGANESE, CALCIUM, MAGNESIUM, ZINC, CO [Concomitant]
  7. PREVACID [Concomitant]
  8. LASIX [Concomitant]
  9. POTASSIUM CHLORIDE [Concomitant]
  10. ASPIRIN [Concomitant]
  11. TRUSOPT [Concomitant]
  12. SYNTHROID [Concomitant]
  13. CELEXA [Concomitant]
  14. XALATAN [Concomitant]
  15. ADVAIR DISKUS 100/50 [Concomitant]
  16. CARDIZEM CD [Concomitant]
  17. IRON (IRON) [Concomitant]
  18. MACRODANTIN [Concomitant]

REACTIONS (2)
  - ACUTE LEUKAEMIA [None]
  - PANCYTOPENIA [None]
